FAERS Safety Report 5956411-6 (Version None)
Quarter: 2008Q4

REPORT INFORMATION
  Report Type: 
  Country: None (occurrence: None)
  Receive Date: 20081118
  Receipt Date: 20081111
  Transmission Date: 20090506
  Serious: Yes (Hospitalization)
  Sender: FDA-Public Use
  Company Number: US-AVENTIS-200819717GDDC

PATIENT
  Age: 69 Year
  Sex: Female
  Weight: 104.1 kg

DRUGS (19)
  1. LANTUS [Suspect]
     Route: 058
  2. APIDRA [Suspect]
     Route: 058
     Dates: start: 20071221, end: 20081009
  3. OPTICLIK (INSULIN INJECTION PEN) [Suspect]
  4. METFORMIN HCL [Suspect]
     Route: 048
     Dates: start: 20061101
  5. ACTOS [Suspect]
     Route: 048
     Dates: start: 20070924
  6. IMODIUM                            /00384302/ [Concomitant]
     Dosage: DOSE QUANTITY: 2
     Route: 048
     Dates: start: 20050101
  7. NORTRIPTYLINE HCL [Concomitant]
     Indication: IRRITABLE BOWEL SYNDROME
     Route: 048
     Dates: start: 19890601
  8. DIOVAN HCT [Concomitant]
     Indication: HYPERTENSION
     Dosage: DOSE: 160/2.5
     Route: 048
     Dates: start: 20040401
  9. TOPROL-XL [Concomitant]
     Indication: HYPERTENSION
     Route: 048
     Dates: start: 19960201
  10. FUROSEMIDE [Concomitant]
     Indication: HYPERTENSION
     Route: 048
     Dates: start: 20040401
  11. LIPITOR [Concomitant]
     Route: 048
     Dates: start: 19950501
  12. ZOLOFT [Concomitant]
     Indication: ANXIETY
     Route: 048
     Dates: start: 19950501
  13. ZOLOFT [Concomitant]
     Indication: DEPRESSION
     Route: 048
     Dates: start: 19950501
  14. ASPIRIN [Concomitant]
     Indication: PROPHYLAXIS
     Route: 048
     Dates: start: 20040401
  15. PRILOSEC [Concomitant]
     Route: 048
     Dates: start: 19950501
  16. WELCHOL [Concomitant]
     Indication: IRRITABLE BOWEL SYNDROME
     Route: 048
     Dates: start: 20080520
  17. BENTYL [Concomitant]
     Indication: IRRITABLE BOWEL SYNDROME
     Route: 048
     Dates: start: 20071221
  18. BENTYL [Concomitant]
     Indication: ABDOMINAL PAIN
     Route: 048
     Dates: start: 20071221
  19. QUESTRAN [Concomitant]
     Indication: IRRITABLE BOWEL SYNDROME
     Dosage: DOSE QUANTITY: 1
     Route: 048
     Dates: start: 20070913

REACTIONS (9)
  - ANAEMIA [None]
  - ASTHENIA [None]
  - CONFUSIONAL STATE [None]
  - HYPERHIDROSIS [None]
  - HYPOGLYCAEMIA [None]
  - PALPITATIONS [None]
  - PRODUCT QUALITY ISSUE [None]
  - TREMOR [None]
  - URINARY TRACT INFECTION [None]
